FAERS Safety Report 10250206 (Version 2)
Quarter: 2014Q2

REPORT INFORMATION
  Report Type: Report from Study
  Country: US (occurrence: US)
  Receive Date: 20140620
  Receipt Date: 20140620
  Transmission Date: 20141212
  Serious: Yes (Hospitalization)
  Sender: FDA-Public Use
  Company Number: US-B.I. PHARMACEUTICALS,INC./RIDGEFIELD-2013-BI-10451BI

PATIENT
  Age: 63 Year
  Sex: Male
  Weight: 101 kg

DRUGS (1)
  1. DABIGATRAN [Suspect]
     Indication: ATRIAL FIBRILLATION
     Dosage: 150 MG
     Route: 048
     Dates: start: 20121226, end: 20130401

REACTIONS (2)
  - Haemorrhoidal haemorrhage [Recovered/Resolved]
  - Diverticulum intestinal haemorrhagic [Recovered/Resolved]
